FAERS Safety Report 16682308 (Version 1)
Quarter: 2019Q3

REPORT INFORMATION
  Report Type: Spontaneous
  Country: CA (occurrence: CA)
  Receive Date: 20190808
  Receipt Date: 20190808
  Transmission Date: 20191004
  Serious: Yes (Hospitalization)
  Sender: FDA-Public Use
  Company Number: CA-PFIZER INC-2019338314

PATIENT
  Age: 56 Year
  Sex: Female

DRUGS (4)
  1. ARTHROTEC [Suspect]
     Active Substance: DICLOFENAC SODIUM\MISOPROSTOL
     Indication: INFLAMMATION
     Dosage: UNK
     Route: 065
  2. PREDNISONE. [Concomitant]
     Active Substance: PREDNISONE
     Dosage: UNK
  3. METHOTREXATE SODIUM. [Suspect]
     Active Substance: METHOTREXATE SODIUM
     Indication: RHEUMATOID ARTHRITIS
     Dosage: UNK
     Route: 065
  4. APO QUININE [Suspect]
     Active Substance: QUININE
     Indication: INFLAMMATION
     Dosage: UNK
     Route: 065

REACTIONS (11)
  - Drug ineffective [Unknown]
  - Lung disorder [Unknown]
  - Pneumonitis [Unknown]
  - Arthritis [Unknown]
  - Dyspnoea [Unknown]
  - Arthralgia [Unknown]
  - Gait disturbance [Unknown]
  - Chest pain [Unknown]
  - Limb discomfort [Unknown]
  - Dysstasia [Unknown]
  - Back pain [Unknown]
